FAERS Safety Report 5208979-5 (Version None)
Quarter: 2007Q1

REPORT INFORMATION
  Report Type: 
  Country: None (occurrence: None)
  Receive Date: 20070116
  Receipt Date: 20070112
  Transmission Date: 20070707
  Serious: Yes (Hospitalization)
  Sender: FDA-Public Use
  Company Number: DE-GLAXOSMITHKLINE-B0428965A

PATIENT
  Age: 74 Year
  Sex: Male
  Weight: 85 kg

DRUGS (14)
  1. TOPOTECAN [Suspect]
     Dosage: 1MGM2 PER DAY
     Route: 042
     Dates: start: 20060512, end: 20060516
  2. CISPLATIN [Suspect]
     Dosage: 75MGM2 PER DAY
     Dates: start: 20060516
  3. FENTANYL TRANSDERMAL SYSTEM [Concomitant]
  4. CAPTOPRIL [Concomitant]
  5. PRAVASTATIN [Concomitant]
  6. THEOPHYLLINE [Concomitant]
  7. ALLOPURINOL SODIUM [Concomitant]
     Route: 048
     Dates: start: 20051228, end: 20060530
  8. MULTI-VITAMIN [Concomitant]
  9. CAPTOPRIL [Concomitant]
     Indication: HYPERTENSION
     Route: 048
     Dates: start: 20051228, end: 20060601
  10. DOLANTIN [Concomitant]
     Indication: PAIN
     Dosage: 50MG PER DAY
     Route: 058
     Dates: start: 20060419, end: 20060419
  11. ERYTHROCYTES [Concomitant]
     Route: 042
     Dates: start: 20060426
  12. NEUPOGEN [Concomitant]
     Indication: NEUTROPENIA
     Route: 058
     Dates: start: 20060427
  13. PRIMAXIN [Concomitant]
     Dosage: 1.5G PER DAY
     Route: 042
     Dates: start: 20060429
  14. KALIUM RETARD [Concomitant]
     Dates: start: 20060501, end: 20060508

REACTIONS (12)
  - ASTHENIA [None]
  - C-REACTIVE PROTEIN INCREASED [None]
  - COUGH [None]
  - GENERAL PHYSICAL HEALTH DETERIORATION [None]
  - HAEMOGLOBIN DECREASED [None]
  - HYPOKALAEMIA [None]
  - NAUSEA [None]
  - PLATELET COUNT DECREASED [None]
  - PRODUCTIVE COUGH [None]
  - PYREXIA [None]
  - RENAL FAILURE [None]
  - WHITE BLOOD CELL COUNT DECREASED [None]
